FAERS Safety Report 4535356-2 (Version None)
Quarter: 2004Q4

REPORT INFORMATION
  Report Type: 
  Country: None (occurrence: None)
  Receive Date: 20041222
  Receipt Date: 20041217
  Transmission Date: 20050328
  Serious: Yes (Hospitalization)
  Sender: FDA-Public Use
  Company Number: US-ABBOTT-04P-163-0283828-00

PATIENT
  Sex: Female
  Weight: 81.72 kg

DRUGS (4)
  1. HUMIRA [Suspect]
     Indication: RHEUMATOID ARTHRITIS
     Route: 058
     Dates: start: 20031201
  2. METHOTREXATE SODIUM [Concomitant]
     Indication: RHEUMATOID ARTHRITIS
     Route: 048
  3. OXYCONTIN [Concomitant]
     Indication: PAIN
  4. AREDIA [Concomitant]
     Indication: BONE DISORDER
     Route: 050
     Dates: start: 20040301

REACTIONS (5)
  - ANAEMIA [None]
  - BLOOD IRON DECREASED [None]
  - DIARRHOEA [None]
  - NAUSEA [None]
  - TOOTH LOSS [None]
